FAERS Safety Report 7929505-3 (Version None)
Quarter: 2011Q4

REPORT INFORMATION
  Report Type: 
  Country: None (occurrence: None)
  Receive Date: 20111121
  Receipt Date: 20111109
  Transmission Date: 20120403
  Serious: Yes (Death, Hospitalization)
  Sender: FDA-Public Use
  Company Number: US-ELI_LILLY_AND_COMPANY-US201110005821

PATIENT
  Sex: Male

DRUGS (4)
  1. CYMBALTA [Suspect]
     Dosage: 40 MG, UNK
  2. PROZAC [Suspect]
     Dosage: 20 MG, UNK
     Dates: start: 20110501, end: 20110701
  3. CYMBALTA [Suspect]
     Indication: MAJOR DEPRESSION
     Dosage: 20 MG, UNK
     Dates: start: 20110701
  4. CYMBALTA [Suspect]
     Dosage: 60 MG, QD
     Route: 048
     Dates: end: 20110901

REACTIONS (5)
  - COMPLETED SUICIDE [None]
  - HOMICIDAL IDEATION [None]
  - SUICIDAL IDEATION [None]
  - OFF LABEL USE [None]
  - BLOOD THYROID STIMULATING HORMONE INCREASED [None]
